FAERS Safety Report 8073506-4 (Version None)
Quarter: 2012Q1

REPORT INFORMATION
  Report Type: 
  Country: None (occurrence: None)
  Receive Date: 20120126
  Receipt Date: 20120122
  Transmission Date: 20120608
  Serious: No
  Sender: FDA-Public Use
  Company Number: US-BAYER-2012-007919

PATIENT
  Sex: Female

DRUGS (4)
  1. EXCEDRIN [ACETYLSALICYLIC ACID,CAFFEINE,PARACETAMOL] [Suspect]
     Indication: HEADACHE
  2. ACETAMINOPHEN [Suspect]
     Indication: HEADACHE
  3. ALEVE (CAPLET) [Suspect]
     Indication: HEADACHE
  4. IBUPROFEN [Suspect]
     Indication: HEADACHE

REACTIONS (1)
  - NO ADVERSE EVENT [None]
